FAERS Safety Report 16277932 (Version 3)
Quarter: 2019Q3

REPORT INFORMATION
  Report Type: Report from Study
  Country: BR (occurrence: BR)
  Receive Date: 20190506
  Receipt Date: 20190904
  Transmission Date: 20191004
  Serious: Yes (Other)
  Sender: FDA-Public Use
  Company Number: BR-UCBSA-2019016916

PATIENT
  Age: 43 Year
  Sex: Female
  Weight: 73 kg

DRUGS (4)
  1. PREDNISOLONA [PREDNISOLONE] [Concomitant]
     Indication: RHEUMATOID ARTHRITIS
     Dosage: 1 DOSAGE FORM, ONCE DAILY (QD)
     Route: 048
  2. METOTREXATO [METHOTREXATE] [Concomitant]
     Active Substance: METHOTREXATE
     Indication: RHEUMATOID ARTHRITIS
     Dosage: 3 ON SATURDAY AND 3 ON SUNDAYS
     Route: 048
  3. CERTOLIZUMAB PEGOL [Suspect]
     Active Substance: CERTOLIZUMAB PEGOL
     Indication: RHEUMATOID ARTHRITIS
     Dosage: 400 MILLIGRAM, EV 2 WEEKS(QOW)
     Route: 058
     Dates: start: 201811, end: 201902
  4. FOLIC ACID. [Concomitant]
     Active Substance: FOLIC ACID
     Indication: RHEUMATOID ARTHRITIS
     Dosage: 1 TABLET ON TUESDAYS
     Route: 048

REACTIONS (2)
  - Hypersensitivity [Recovered/Resolved]
  - Onychomadesis [Recovered/Resolved]

NARRATIVE: CASE EVENT DATE: 201811
